FAERS Safety Report 17945353 (Version 1)
Quarter: 2020Q2

REPORT INFORMATION
  Report Type: Spontaneous
  Country: US (occurrence: US)
  Receive Date: 20200625
  Receipt Date: 20200625
  Transmission Date: 20200714
  Serious: Yes (Hospitalization, Other)
  Sender: FDA-Public Use
  Company Number: US-ELI_LILLY_AND_COMPANY-US202006007876

PATIENT
  Age: 53 Year
  Sex: Female

DRUGS (3)
  1. HUMALOG MIX75/25 [Suspect]
     Active Substance: INSULIN LISPRO
     Dosage: 70 U, DAILY AT NIGHT
     Route: 065
  2. HUMALOG MIX75/25 [Suspect]
     Active Substance: INSULIN LISPRO
     Dosage: 35 U, UNKNOWN WITH EACH MEAL
     Route: 065
  3. HUMALOG MIX75/25 [Suspect]
     Active Substance: INSULIN LISPRO
     Indication: PRODUCT USED FOR UNKNOWN INDICATION
     Dosage: 75 U, EACH MORNING
     Route: 065

REACTIONS (9)
  - Fluid retention [Unknown]
  - Cardiac failure [Unknown]
  - Peripheral swelling [Unknown]
  - Peripheral swelling [Unknown]
  - Diabetes mellitus inadequate control [Unknown]
  - Blood potassium increased [Unknown]
  - Gait disturbance [Unknown]
  - Ill-defined disorder [Unknown]
  - Asthenia [Unknown]

NARRATIVE: CASE EVENT DATE: 20200609
